FAERS Safety Report 9235027 (Version 2)
Quarter: 2013Q2

REPORT INFORMATION
  Report Type: Report from Study
  Country: US (occurrence: US)
  Receive Date: 20130416
  Receipt Date: 20130514
  Transmission Date: 20140414
  Serious: Yes (Hospitalization, Disabling)
  Sender: FDA-Public Use
  Company Number: US-ACTELION-A-US2011-55699

PATIENT
  Age: 78 Year
  Sex: Female

DRUGS (14)
  1. TRACLEER [Suspect]
     Indication: PULMONARY ARTERIAL HYPERTENSION
     Dosage: UNK
     Route: 048
     Dates: start: 20100616
  2. REVATIO [Concomitant]
     Dosage: 20 MG, TID
  3. COUMADIN [Concomitant]
     Dosage: 3 MG, UNK
  4. FUROSEMIDE [Concomitant]
     Dosage: 40 MG, UNK
  5. DIGOXIN [Concomitant]
     Dosage: 0.125 MG, UNK
  6. SLOW-MAG [Concomitant]
     Dosage: 64 MG, UNK
  7. KLOR-CON [Concomitant]
  8. DILTIAZEM [Concomitant]
     Dosage: 125 MG, UNK
  9. ONE A DAY [Concomitant]
  10. FLOVENT [Concomitant]
     Dosage: 2 PUFF, BID
  11. IPRATROPIUM BROMIDE/ALBUTEROL SULFATE [Concomitant]
     Dosage: UNK, QID
  12. ALPRAZOLAM [Concomitant]
     Dosage: 0.25 MG, PRN
  13. TYLENOL [Concomitant]
     Dosage: 500 MG, PRN
  14. TUSSIONEX [Concomitant]
     Dosage: UNK, PRN

REACTIONS (9)
  - Epistaxis [Recovered/Resolved]
  - Dyspnoea [Not Recovered/Not Resolved]
  - Oedema [Unknown]
  - Local swelling [Unknown]
  - Haemoptysis [Recovered/Resolved]
  - Fluid retention [Recovered/Resolved]
  - Mobility decreased [Not Recovered/Not Resolved]
  - Dyspnoea exertional [Unknown]
  - Condition aggravated [Unknown]
